FAERS Safety Report 12561193 (Version 1)
Quarter: 2016Q3

REPORT INFORMATION
  Report Type: Spontaneous
  Country: None (occurrence: PL)
  Receive Date: 20160715
  Receipt Date: 20160715
  Transmission Date: 20161109
  Serious: Yes (Other)
  Sender: FDA-Public Use
  Company Number: PL-MERCK KGAA-1055097

PATIENT

DRUGS (1)
  1. NOVOTHYROX [Suspect]
     Active Substance: LEVOTHYROXINE SODIUM

REACTIONS (7)
  - Angina pectoris [None]
  - Burning sensation [None]
  - Headache [None]
  - Sleep disorder [None]
  - Fatigue [None]
  - Hot flush [None]
  - Weight increased [None]
